FAERS Safety Report 10469440 (Version 3)
Quarter: 2014Q1

REPORT INFORMATION
  Report Type: Spontaneous
  Country: US (occurrence: None)
  Receive Date: 20131025
  Receipt Date: 20131206
  Transmission Date: 20141002
  Serious: Yes (Death, Hospitalization)
  Sender: FDA-Public Use
  Company Number: US-000770

PATIENT
  Sex: Female

DRUGS (17)
  1. GATTEX 0.19 ML [Suspect]
     Indication: SHORT-BOWEL SYNDROME
     Route: 058
     Dates: start: 20130813, end: 20130822
  2. SOLUTIONS FOR PARENTERAL NUTRITION [Concomitant]
  3. DILAUDID [Concomitant]
  4. FIORICET [Concomitant]
  5. ROXICET [Concomitant]
  6. SKELAXIN [Concomitant]
  7. MYLANTA [Concomitant]
  8. BENADRYL [Concomitant]
  9. FLONASE [Concomitant]
  10. LEVEMIR [Concomitant]
  11. NOVOLOG [Concomitant]
  12. MILK OF MAGNESIA [Concomitant]
  13. ZOFRAN [Concomitant]
  14. SYNTHROID [Concomitant]
  15. PYRIDIUM [Concomitant]
  16. LOMOTIL [Concomitant]
  17. HYOSCYAMINE [Concomitant]

REACTIONS (17)
  - Pyrexia [None]
  - Swelling [None]
  - Adverse event [None]
  - Hypersensitivity [None]
  - Overdose [None]
  - Weight fluctuation [None]
  - Influenza like illness [None]
  - Headache [None]
  - Abdominal distension [None]
  - Local swelling [None]
  - Upper respiratory tract infection [None]
  - Anaemia of chronic disease [None]
  - Excessive granulation tissue [None]
  - Gastrointestinal haemorrhage [None]
  - Vaginal haemorrhage [None]
  - Abdominal pain [None]
  - Fatigue [None]
